FAERS Safety Report 4599852-4 (Version None)
Quarter: 2005Q1

REPORT INFORMATION
  Report Type: 
  Country: None (occurrence: None)
  Receive Date: 20050303
  Receipt Date: 20050216
  Transmission Date: 20050727
  Serious: Yes (Hospitalization, Other)
  Sender: FDA-Public Use
  Company Number: USA050290977

PATIENT
  Age: 47 Year
  Sex: Male

DRUGS (5)
  1. HUMULIN N [Suspect]
     Indication: DIABETES MELLITUS
     Dosage: 76 U DAY
     Dates: start: 19890901
  2. HUMULIN R [Suspect]
     Indication: DIABETES MELLITUS
     Dates: start: 19890901
  3. NOVOLIN (INSULIN HUMAN INJECTION, ISOPHANE) [Concomitant]
  4. LIPITOR [Concomitant]
  5. FLAX SEED OIL [Concomitant]

REACTIONS (14)
  - ARTERIAL INJURY [None]
  - BLOOD GLUCOSE INCREASED [None]
  - BLOOD TRIGLYCERIDES INCREASED [None]
  - CARDIOVASCULAR DISORDER [None]
  - CEREBROVASCULAR ACCIDENT [None]
  - DRUG INEFFECTIVE [None]
  - DYSLEXIA [None]
  - ECONOMIC PROBLEM [None]
  - MULTIPLE FRACTURES [None]
  - MYOCARDIAL INFARCTION [None]
  - PANCREATITIS [None]
  - RIB FRACTURE [None]
  - SPINAL FRACTURE [None]
  - TRAUMATIC FRACTURE [None]
